FAERS Safety Report 8492194-6 (Version None)
Quarter: 2012Q3

REPORT INFORMATION
  Report Type: 
  Country: None (occurrence: None)
  Receive Date: 20120706
  Receipt Date: 20120628
  Transmission Date: 20120928
  Serious: Yes (Hospitalization)
  Sender: FDA-Public Use
  Company Number: US-BAYER-2012-065661

PATIENT
  Age: 35 Year
  Sex: Female

DRUGS (7)
  1. MUCINEX [Concomitant]
  2. AZITHROMYCIN [Concomitant]
  3. AMOXICILLIN [Concomitant]
  4. YAZ [Suspect]
  5. CEFTRIAXONE [Concomitant]
  6. ACYCLOVIR [Concomitant]
  7. VANCOMYCIN [Concomitant]

REACTIONS (3)
  - INTRACRANIAL VENOUS SINUS THROMBOSIS [None]
  - PULMONARY EMBOLISM [None]
  - CEREBRAL INFARCTION [None]
